FAERS Safety Report 7461546-5 (Version None)
Quarter: 2011Q2

REPORT INFORMATION
  Report Type: 
  Country: None (occurrence: None)
  Receive Date: 20110506
  Receipt Date: 20110422
  Transmission Date: 20111010
  Serious: Yes (Other)
  Sender: FDA-Public Use
  Company Number: US-JNJFOC-20110410399

PATIENT
  Sex: Male
  Weight: 98.88 kg

DRUGS (1)
  1. REMICADE [Suspect]
     Indication: RHEUMATOID ARTHRITIS
     Route: 042

REACTIONS (6)
  - DYSPNOEA [None]
  - IMPAIRED WORK ABILITY [None]
  - RASH [None]
  - DRUG INEFFECTIVE [None]
  - MUSCLE DISORDER [None]
  - PRURITUS [None]
